FAERS Safety Report 7019621-5 (Version None)
Quarter: 2010Q3

REPORT INFORMATION
  Report Type: 
  Country: None (occurrence: None)
  Receive Date: 20100928
  Receipt Date: 20100928
  Transmission Date: 20110219
  Serious: Yes (Other)
  Sender: FDA-Public Use
  Company Number: None

PATIENT
  Age: 28 Year
  Sex: Female
  Weight: 71.6683 kg

DRUGS (1)
  1. SRONYX .1 MG LEVONORGESTREL WATSON 0.02 MG ETHINYL ESTRADIOL [Suspect]
     Indication: CONTRACEPTION
     Dosage: 1 TABLET 1X DAY PO
     Route: 048
     Dates: start: 20100105, end: 20100701

REACTIONS (1)
  - PREGNANCY ON ORAL CONTRACEPTIVE [None]
